FAERS Safety Report 20110070 (Version 1)
Quarter: 2021Q4

REPORT INFORMATION
  Report Type: Spontaneous
  Country: JP (occurrence: JP)
  Receive Date: 20211124
  Receipt Date: 20211124
  Transmission Date: 20220304
  Serious: Yes (Hospitalization)
  Sender: FDA-Public Use
  Company Number: JP-CELGENE-JPN-20211105339

PATIENT
  Sex: Male

DRUGS (1)
  1. AZACITIDINE [Suspect]
     Active Substance: AZACITIDINE
     Indication: Myelodysplastic syndrome
     Dosage: 100 MILLIGRAM
     Route: 065
     Dates: start: 20211018

REACTIONS (2)
  - Constipation [Not Recovered/Not Resolved]
  - Enterocolitis [Not Recovered/Not Resolved]

NARRATIVE: CASE EVENT DATE: 20211025
